FAERS Safety Report 8992911 (Version 1)
Quarter: 2013Q1

REPORT INFORMATION
  Report Type: Report from Study
  Country: US (occurrence: US)
  Receive Date: 20130102
  Receipt Date: 20130102
  Transmission Date: 20140127
  Serious: Yes (Hospitalization)
  Sender: FDA-Public Use
  Company Number: US-JNJFOC-20121212038

PATIENT
  Sex: Male
  Weight: 90.72 kg

DRUGS (5)
  1. SIMPONI [Suspect]
     Indication: PSORIATIC ARTHROPATHY
     Route: 058
     Dates: start: 2012, end: 2012
  2. HYZAAR [Concomitant]
     Indication: BLOOD PRESSURE
     Route: 048
  3. RAPAFLO [Concomitant]
     Indication: PROSTATIC DISORDER
     Route: 048
  4. ALL OTHER THERAPEUTIC PRODUCTS [Concomitant]
     Indication: PROSTATIC DISORDER
     Route: 048
  5. TYLENOL [Concomitant]
     Route: 048

REACTIONS (3)
  - Gastrointestinal disorder [Recovered/Resolved]
  - Device failure [Not Recovered/Not Resolved]
  - Arthralgia [Unknown]
